FAERS Safety Report 15368365 (Version 2)
Quarter: 2018Q3

REPORT INFORMATION
  Report Type: Spontaneous
  Country: US (occurrence: US)
  Receive Date: 20180910
  Receipt Date: 20180920
  Transmission Date: 20181010
  Serious: No
  Sender: FDA-Public Use
  Company Number: US-TAKEDA-2018TUS026381

PATIENT
  Sex: Male
  Weight: 73.92 kg

DRUGS (7)
  1. DEXILANT [Suspect]
     Active Substance: DEXLANSOPRAZOLE
     Indication: GASTRITIS
  2. DEXILANT [Suspect]
     Active Substance: DEXLANSOPRAZOLE
     Indication: OESOPHAGEAL STENOSIS
  3. DEXILANT [Suspect]
     Active Substance: DEXLANSOPRAZOLE
     Indication: BARRETT^S OESOPHAGUS
     Dosage: 60 MG, QD
     Route: 048
     Dates: start: 2016, end: 20180906
  4. DEXILANT [Suspect]
     Active Substance: DEXLANSOPRAZOLE
     Indication: POLYP
  5. DEXILANT [Suspect]
     Active Substance: DEXLANSOPRAZOLE
     Indication: GASTROOESOPHAGEAL REFLUX DISEASE
  6. DEXILANT [Suspect]
     Active Substance: DEXLANSOPRAZOLE
     Indication: DYSPEPSIA
  7. DEXILANT [Suspect]
     Active Substance: DEXLANSOPRAZOLE
     Indication: ULCER

REACTIONS (2)
  - Off label use [Unknown]
  - No adverse event [Unknown]

NARRATIVE: CASE EVENT DATE: 2016
